FAERS Safety Report 7545232-9 (Version None)
Quarter: 2011Q2

REPORT INFORMATION
  Report Type: 
  Country: None (occurrence: None)
  Receive Date: 20110614
  Receipt Date: 20110601
  Transmission Date: 20111010
  Serious: Yes (Disabling, Other)
  Sender: FDA-Public Use
  Company Number: JP-BAYER-2011-031222

PATIENT
  Age: 72 Year
  Sex: Male
  Weight: 67 kg

DRUGS (7)
  1. CISPLATIN [Concomitant]
     Indication: METASTASES TO LIVER
  2. NEXAVAR [Suspect]
     Indication: HEPATIC NEOPLASM MALIGNANT
     Dosage: DAILY DOSE 400 MG
     Route: 048
     Dates: start: 20110221, end: 20110323
  3. FLUOROURACIL [Concomitant]
     Indication: DEVICE RELATED INFECTION
     Dosage: DAILY DOSE 250 MG
     Route: 042
     Dates: start: 20101115, end: 20110131
  4. FLUOROURACIL [Concomitant]
     Indication: METASTASES TO LIVER
  5. CISPLATIN [Concomitant]
     Indication: DEVICE RELATED INFECTION
     Dosage: DAILY DOSE 5 MG
     Route: 042
     Dates: start: 20101115, end: 20110131
  6. NEXAVAR [Suspect]
     Dosage: DAILY DOSE 400 MG
     Route: 048
     Dates: start: 20110330, end: 20110406
  7. IA-CALL [Suspect]
     Indication: PROPHYLAXIS
     Dosage: DAILY DOSE 85 MG
     Route: 013
     Dates: start: 20110221, end: 20110221

REACTIONS (4)
  - WHITE BLOOD CELL COUNT DECREASED [None]
  - HEPATIC FUNCTION ABNORMAL [None]
  - NEUTROPHIL COUNT DECREASED [None]
  - BLOOD PRESSURE INCREASED [None]
